FAERS Safety Report 24744569 (Version 2)
Quarter: 2025Q1

REPORT INFORMATION
  Report Type: Report from Study
  Country: CO (occurrence: CO)
  Receive Date: 20241217
  Receipt Date: 20250127
  Transmission Date: 20250409
  Serious: Yes (Other)
  Sender: EMD SERONO INC
  Company Number: CO-Merck Healthcare KGaA-2024065312

PATIENT
  Age: 34 Year
  Sex: Female

DRUGS (2)
  1. MAVENCLAD [Suspect]
     Active Substance: CLADRIBINE
     Indication: Multiple sclerosis
  2. MAVENCLAD [Suspect]
     Active Substance: CLADRIBINE

REACTIONS (2)
  - Gestational trophoblastic tumour [Unknown]
  - Maternal exposure before pregnancy [Not Recovered/Not Resolved]

NARRATIVE: CASE EVENT DATE: 20240401
